FAERS Safety Report 17768090 (Version 2)
Quarter: 2020Q2

REPORT INFORMATION
  Report Type: Report from Study
  Country: None (occurrence: RU)
  Receive Date: 20200511
  Receipt Date: 20200521
  Transmission Date: 20200714
  Serious: Yes (Hospitalization)
  Sender: FDA-Public Use
  Company Number: RU-ABBVIE-20P-251-3389684-00

PATIENT
  Age: 78 Year
  Sex: Male
  Weight: 86 kg

DRUGS (11)
  1. BORTEZOMIB. [Suspect]
     Active Substance: BORTEZOMIB
     Indication: PLASMA CELL MYELOMA
     Dosage: ON DAYS 1,8,15 AND 22
     Route: 058
     Dates: start: 20170313, end: 20170608
  2. ACICLOVIR [Concomitant]
     Active Substance: ACYCLOVIR
     Indication: ANTIVIRAL PROPHYLAXIS
     Route: 048
     Dates: start: 20170312
  3. VAMLOSET [Concomitant]
     Indication: HYPERTENSION
     Dosage: 5/160 MG
     Route: 048
     Dates: start: 201608
  4. BISEPTOL [Concomitant]
     Active Substance: SULFAMETHOXAZOLE\TRIMETHOPRIM
     Indication: ANTIBIOTIC PROPHYLAXIS
     Route: 048
     Dates: start: 20190318
  5. BORTEZOMIB. [Suspect]
     Active Substance: BORTEZOMIB
     Dosage: ON DAYS 1,8,15 AND 22
     Route: 058
     Dates: start: 20170612, end: 20200406
  6. CARVEDILOL. [Concomitant]
     Active Substance: CARVEDILOL
     Indication: HYPERTENSION
     Route: 048
     Dates: start: 201608
  7. VENETOCLAX. [Suspect]
     Active Substance: VENETOCLAX
     Indication: PLASMA CELL MYELOMA
     Route: 048
     Dates: start: 20170313, end: 20200501
  8. DEXAMETHASONE. [Suspect]
     Active Substance: DEXAMETHASONE
     Indication: PLASMA CELL MYELOMA
     Dosage: ON DAYS 1, 2, 8, 9, 15, 16, 22 AND 23
     Route: 048
     Dates: start: 20170313, end: 20200414
  9. MEXIDOL [Concomitant]
     Active Substance: EMOXYPINE SUCCINATE
     Indication: NEUROPATHY PERIPHERAL
     Dosage: ON DAYS OF AN INJECTION OF A BORTEZOMIB
     Route: 042
     Dates: start: 20170403
  10. COMBILIPEN [Concomitant]
     Indication: NEUROPATHY PERIPHERAL
     Dosage: ON DAYS OF AN INJECTION OF A BORTEZOMIB
     Route: 030
     Dates: start: 20170403
  11. LEVOFLOXACIN. [Concomitant]
     Active Substance: LEVOFLOXACIN
     Indication: ANTIBIOTIC PROPHYLAXIS
     Route: 048
     Dates: start: 20190318

REACTIONS (1)
  - Cellulitis [Not Recovered/Not Resolved]

NARRATIVE: CASE EVENT DATE: 20200502
